FAERS Safety Report 4874893-8 (Version None)
Quarter: 2006Q1

REPORT INFORMATION
  Report Type: 
  Country: None (occurrence: None)
  Receive Date: 20060105
  Receipt Date: 20051222
  Transmission Date: 20060701
  Serious: Yes (Hospitalization, Other)
  Sender: FDA-Public Use
  Company Number: USA-2005-0020845

PATIENT
  Sex: Female

DRUGS (24)
  1. OXYCONTIN [Suspect]
     Indication: PAIN
     Dosage: 40 + 60 + 80 MG, BID,
  2. NEURONTIN [Concomitant]
  3. COUMADIN [Concomitant]
  4. DILANTIN [Concomitant]
  5. TENORETIC 100 [Concomitant]
  6. POTASSIUM (POTASSIUM) [Concomitant]
  7. LASIX [Concomitant]
  8. ALLOPURINOL [Concomitant]
  9. LORCET-HD [Concomitant]
  10. ALLEGRA [Concomitant]
  11. MECLIZINE [Concomitant]
  12. EFFEXOR [Concomitant]
  13. PREMARIN [Concomitant]
  14. PRILOSEC (OMEPRASOLE) [Concomitant]
  15. REGLAN [Concomitant]
  16. ZOCOR CARDIO ASS (SIMVASTATIN) [Concomitant]
  17. ZAROXOLYN [Concomitant]
  18. NORVASC [Concomitant]
  19. FLEXERIL [Concomitant]
  20. BENADRYL [Concomitant]
  21. PROPULSID [Concomitant]
  22. PREVACID [Concomitant]
  23. PRINZIDE [Concomitant]
  24. ZESTRIL [Concomitant]

REACTIONS (59)
  - ANEURYSM [None]
  - ANXIETY [None]
  - ARTHRALGIA [None]
  - ASTHENIA [None]
  - BACK PAIN [None]
  - BLOOD POTASSIUM INCREASED [None]
  - BORDERLINE PERSONALITY DISORDER [None]
  - CARDIAC FAILURE CONGESTIVE [None]
  - CAROTID ARTERY ANEURYSM [None]
  - CHEST PAIN [None]
  - CONTUSION [None]
  - DEEP VEIN THROMBOSIS [None]
  - DELUSIONAL DISORDER, UNSPECIFIED TYPE [None]
  - DEPRESSED MOOD [None]
  - DEPRESSION [None]
  - DIZZINESS [None]
  - DRUG DEPENDENCE [None]
  - DRUG TOLERANCE [None]
  - DRUG WITHDRAWAL SYNDROME [None]
  - DYSARTHRIA [None]
  - DYSPHASIA [None]
  - DYSPNOEA [None]
  - DYSPNOEA EXERTIONAL [None]
  - ELECTROCARDIOGRAM ABNORMAL [None]
  - ELECTROCARDIOGRAM ST SEGMENT DEPRESSION [None]
  - EYELID PTOSIS [None]
  - FACIAL PALSY [None]
  - FATIGUE [None]
  - GAIT DISTURBANCE [None]
  - GAZE PALSY [None]
  - GENERALISED OEDEMA [None]
  - GINGIVAL BLEEDING [None]
  - HAEMATEMESIS [None]
  - HEART RATE INCREASED [None]
  - HEMIPARESIS [None]
  - HYPERHIDROSIS [None]
  - HYPERKALAEMIA [None]
  - HYPOAESTHESIA [None]
  - INSOMNIA [None]
  - INTERNATIONAL NORMALISED RATIO DECREASED [None]
  - INTERNATIONAL NORMALISED RATIO INCREASED [None]
  - MIGRAINE [None]
  - NAUSEA [None]
  - NECK PAIN [None]
  - NIGHTMARE [None]
  - NYSTAGMUS [None]
  - OBSESSIVE-COMPULSIVE DISORDER [None]
  - PAIN [None]
  - PARAESTHESIA [None]
  - PARANOIA [None]
  - PETECHIAE [None]
  - PHONOPHOBIA [None]
  - PHOTOPHOBIA [None]
  - PITTING OEDEMA [None]
  - PROTEINURIA [None]
  - PRURITUS [None]
  - SCIATICA [None]
  - VOMITING [None]
  - WHEEZING [None]
